FAERS Safety Report 8269775-8 (Version None)
Quarter: 2012Q1

REPORT INFORMATION
  Report Type: 
  Country: None (occurrence: None)
  Receive Date: 20120327
  Receipt Date: 20090609
  Transmission Date: 20120608
  Serious: Yes (Other)
  Sender: FDA-Public Use
  Company Number: PHEH2009US10253

PATIENT
  Age: 80 Year
  Weight: 49.9 kg

DRUGS (1)
  1. GLEEVEC [Suspect]
     Dosage: 100 MG DAILY

REACTIONS (2)
  - CREATININE RENAL CLEARANCE DECREASED [None]
  - BLOOD CREATININE INCREASED [None]
